FAERS Safety Report 10654718 (Version 1)
Quarter: 2014Q4

REPORT INFORMATION
  Report Type: Spontaneous
  Country: US (occurrence: None)
  Receive Date: 20141215
  Receipt Date: 20141215
  Transmission Date: 20150529
  Serious: No
  Sender: FDA-Public Use
  Company Number: None

PATIENT
  Age: 57 Year
  Sex: Female

DRUGS (2)
  1. SOVALDI [Suspect]
     Active Substance: SOFOSBUVIR
     Indication: COMA HEPATIC
     Route: 048
     Dates: start: 20141021
  2. RIBAVIRIN. [Suspect]
     Active Substance: RIBAVIRIN
     Indication: COMA HEPATIC
     Dosage: RIBAVIRIN 200MG 600MG AM, 400MG PM PO
     Route: 048
     Dates: start: 20141021

REACTIONS (3)
  - Anxiety [None]
  - Depression [None]
  - Suicidal ideation [None]

NARRATIVE: CASE EVENT DATE: 20141203
